FAERS Safety Report 12313716 (Version 2)
Quarter: 2016Q2

REPORT INFORMATION
  Report Type: Spontaneous
  Country: US (occurrence: US)
  Receive Date: 20160428
  Receipt Date: 20160428
  Transmission Date: 20160815
  Serious: Yes (Hospitalization)
  Sender: FDA-Public Use
  Company Number: US-CELGENEUS-USA-2015097005

PATIENT
  Age: 64 Year
  Sex: Male
  Weight: 110.3 kg

DRUGS (5)
  1. MK-3475 [Concomitant]
     Active Substance: PEMBROLIZUMAB
  2. REVLIMID [Suspect]
     Active Substance: LENALIDOMIDE
     Route: 048
     Dates: start: 201507
  3. DEXAMETHASONE. [Concomitant]
     Active Substance: DEXAMETHASONE
     Indication: PRODUCT USED FOR UNKNOWN INDICATION
     Route: 065
     Dates: start: 201507
  4. REVLIMID [Suspect]
     Active Substance: LENALIDOMIDE
     Route: 048
     Dates: start: 201506
  5. REVLIMID [Suspect]
     Active Substance: LENALIDOMIDE
     Indication: PLASMA CELL MYELOMA
     Route: 048
     Dates: start: 200611

REACTIONS (3)
  - Aphasia [Unknown]
  - Colitis ischaemic [Unknown]
  - West Nile viral infection [Unknown]

NARRATIVE: CASE EVENT DATE: 201508
